FAERS Safety Report 16032437 (Version 1)
Quarter: 2019Q1

REPORT INFORMATION
  Report Type: Report from Study
  Country: BR (occurrence: BR)
  Receive Date: 20190304
  Receipt Date: 20190304
  Transmission Date: 20190418
  Serious: Yes (Life-Threatening, Hospitalization, Other)
  Sender: FDA-Public Use
  Company Number: PHHY2018BR080157

PATIENT
  Age: 26 Year
  Sex: Female
  Weight: 85 kg

DRUGS (3)
  1. SERTRALINE [Concomitant]
     Active Substance: SERTRALINE HYDROCHLORIDE
     Indication: DEPRESSION
     Dosage: 25 MG, QD
     Route: 065
     Dates: start: 20151209
  2. GILENYA [Suspect]
     Active Substance: FINGOLIMOD HYDROCHLORIDE
     Indication: MULTIPLE SCLEROSIS
     Dosage: 0.5 MG, QD
     Route: 048
     Dates: start: 201806
  3. PAROXETIN [Concomitant]
     Active Substance: PAROXETINE HYDROCHLORIDE
     Indication: DEPRESSION
     Dosage: 20 MG, QD
     Route: 065
     Dates: start: 20150902

REACTIONS (19)
  - Suicide attempt [Recovered/Resolved]
  - Lung infection [Unknown]
  - Ear infection [Unknown]
  - Multiple sclerosis [Unknown]
  - Cystitis [Unknown]
  - Pharyngitis [Unknown]
  - Paraesthesia [Unknown]
  - Sinusitis [Unknown]
  - Dyschromatopsia [Unknown]
  - Vision blurred [Unknown]
  - Arrhythmia [Unknown]
  - Pain [Not Recovered/Not Resolved]
  - Pyrexia [Unknown]
  - Musculoskeletal discomfort [Unknown]
  - Intentional product misuse [Recovered/Resolved]
  - Abdominal pain upper [Unknown]
  - Somnolence [Recovered/Resolved]
  - Immune system disorder [Unknown]
  - Fall [Unknown]

NARRATIVE: CASE EVENT DATE: 20180815
